FAERS Safety Report 8965042 (Version 1)
Quarter: 2012Q4

REPORT INFORMATION
  Report Type: 
  Country: US (occurrence: US)
  Receive Date: 20121213
  Receipt Date: 20121213
  Transmission Date: 20130627
  Serious: No
  Sender: FDA-Public Use
  Company Number: US-BRISTOL-MYERS SQUIBB COMPANY-16280547

PATIENT
  Age: 61 Year
  Sex: Female

DRUGS (10)
  1. PRAVASTATIN SODIUM [Suspect]
     Indication: BLOOD CHOLESTEROL
  2. COZAAR [Suspect]
  3. NIASPAN [Suspect]
     Indication: BLOOD CHOLESTEROL
     Dosage: extended  release
  4. GINKGO BILOBA [Concomitant]
  5. FISH OIL [Concomitant]
  6. PROTONIX [Concomitant]
  7. ASPIRIN [Concomitant]
  8. LISINOPRIL + HCTZ [Concomitant]
  9. IRON TABLETS [Concomitant]
  10. LIPITOR [Concomitant]

REACTIONS (1)
  - Hypersensitivity [Unknown]
